FAERS Safety Report 25919665 (Version 1)
Quarter: 2025Q4

REPORT INFORMATION
  Report Type: Spontaneous
  Country: EU (occurrence: EU)
  Receive Date: 20251014
  Receipt Date: 20251014
  Transmission Date: 20260118
  Serious: Yes (Death)
  Sender: INCYTE
  Company Number: EU-002147023-NVSC2025ES158204

PATIENT
  Age: 80 Year

DRUGS (1)
  1. RUXOLITINIB [Suspect]
     Active Substance: RUXOLITINIB
     Indication: Polycythaemia vera
     Dosage: 10 MG, Q12H (EVERY 12 HOURS)
     Route: 065

REACTIONS (1)
  - Cerebral haemorrhage [Fatal]
